FAERS Safety Report 9204880 (Version 1)
Quarter: 2013Q1

REPORT INFORMATION
  Report Type: Spontaneous
  Country: US (occurrence: None)
  Receive Date: 20130329
  Receipt Date: 20130329
  Transmission Date: 20140127
  Serious: Yes (Other)
  Sender: FDA-Public Use
  Company Number: US-CLINIGEN HEALTHCARE LIMITED-003048

PATIENT
  Age: 52 Year
  Sex: Male

DRUGS (2)
  1. FOSCAVIR (FOSCAVIR) [Suspect]
     Indication: CYTOMEGALOVIRUS CHORIORETINITIS
  2. FOSCAVIR (FOSCAVIR) [Suspect]
     Indication: CYTOMEGALOVIRUS CHORIORETINITIS

REACTIONS (8)
  - Dysphagia [None]
  - Failure to thrive [None]
  - Electrolyte imbalance [None]
  - Hypokalaemia [None]
  - Hypophosphataemia [None]
  - Cytomegalovirus oesophagitis [None]
  - Renal impairment [None]
  - Drug resistance [None]
